FAERS Safety Report 15134105 (Version 2)
Quarter: 2018Q3

REPORT INFORMATION
  Report Type: Spontaneous
  Country: JP (occurrence: JP)
  Receive Date: 20180712
  Receipt Date: 20180802
  Transmission Date: 20181010
  Serious: Yes (Other)
  Sender: FDA-Public Use
  Company Number: JP-BAYER-2018-128221

PATIENT
  Sex: Female

DRUGS (2)
  1. EDOXABAN [Concomitant]
     Active Substance: EDOXABAN TOSYLATE
  2. BAYASPIRIN 100 MG [Suspect]
     Active Substance: ASPIRIN
     Dosage: UNK, QD
     Route: 048

REACTIONS (1)
  - Oesophageal stenosis [Recovered/Resolved]
